FAERS Safety Report 5719980-7 (Version None)
Quarter: 2008Q2

REPORT INFORMATION
  Report Type: 
  Country: None (occurrence: None)
  Receive Date: 20080425
  Receipt Date: 20080425
  Transmission Date: 20081010
  Serious: Yes (Hospitalization)
  Sender: FDA-Public Use
  Company Number: None

PATIENT
  Age: 60 Year
  Sex: Male
  Weight: 88 kg

DRUGS (1)
  1. ZOLPIDEM [Suspect]
     Indication: INSOMNIA
     Dosage: 10 MG AT BEDTIME PO
     Route: 048
     Dates: start: 20080216, end: 20080216

REACTIONS (5)
  - ACUTE MYOCARDIAL INFARCTION [None]
  - ANAPHYLACTIC REACTION [None]
  - ANGIOEDEMA [None]
  - HYPOTENSION [None]
  - RESPIRATORY DISTRESS [None]
